FAERS Safety Report 25276418 (Version 3)
Quarter: 2025Q4

REPORT INFORMATION
  Report Type: Spontaneous
  Country: US (occurrence: US)
  Receive Date: 20250507
  Receipt Date: 20251125
  Transmission Date: 20260118
  Serious: No
  Sender: OTSUKA
  Company Number: US-MMM-Otsuka-67LDM2Y9

PATIENT
  Age: 21 Year
  Sex: Female
  Weight: 68.03 kg

DRUGS (5)
  1. ABILIFY ASIMTUFII [Suspect]
     Active Substance: ARIPIPRAZOLE
     Indication: Adjuvant therapy
     Dosage: 960 MG (3.2ML), EVERY 2 MONTHS
     Dates: start: 20250305, end: 20250429
  2. ABILIFY ASIMTUFII [Suspect]
     Active Substance: ARIPIPRAZOLE
     Indication: Major depression
  3. ABILIFY MAINTENA [Suspect]
     Active Substance: ARIPIPRAZOLE
     Indication: Product used for unknown indication
     Dosage: 400 MG
     Route: 065
  4. EFFEXOR XR [Concomitant]
     Active Substance: VENLAFAXINE HYDROCHLORIDE
     Indication: Major depression
     Dosage: 112.5 MG (TAPER OFF EVERY 2 WEEKS) EXTENDED RELEASE
  5. EFFEXOR XR [Concomitant]
     Active Substance: VENLAFAXINE HYDROCHLORIDE
     Dosage: ACTIVELY TAPERING DOWN AND OFF

REACTIONS (3)
  - Maternal exposure during pregnancy [Unknown]
  - Insurance issue [Unknown]
  - Product use in unapproved indication [Unknown]

NARRATIVE: CASE EVENT DATE: 20250305
